FAERS Safety Report 14161143 (Version 1)
Quarter: 2017Q4

REPORT INFORMATION
  Report Type: Spontaneous
  Country: US (occurrence: US)
  Receive Date: 20171104
  Receipt Date: 20171104
  Transmission Date: 20180321
  Serious: Yes (Other)
  Sender: FDA-Public Use
  Company Number: None

PATIENT
  Age: 68 Year
  Sex: Female
  Weight: 96.3 kg

DRUGS (1)
  1. PRADAXA [Suspect]
     Active Substance: DABIGATRAN ETEXILATE MESYLATE
     Indication: ANTICOAGULANT THERAPY
     Dosage: ?          QUANTITY:1 CAPSULE(S);?
     Route: 048
     Dates: start: 20171020

REACTIONS (7)
  - Tremor [None]
  - Haemorrhage [None]
  - Gait disturbance [None]
  - Drug interaction [None]
  - Dizziness [None]
  - Balance disorder [None]
  - Motor dysfunction [None]

NARRATIVE: CASE EVENT DATE: 20171030
